FAERS Safety Report 5491113-4 (Version None)
Quarter: 2007Q4

REPORT INFORMATION
  Report Type: 
  Country: None (occurrence: None)
  Receive Date: 20071019
  Receipt Date: 20071009
  Transmission Date: 20080405
  Serious: Yes (Other)
  Sender: FDA-Public Use
  Company Number: US-PFIZER INC-2007071556

PATIENT
  Sex: Male

DRUGS (1)
  1. LIPITOR [Suspect]

REACTIONS (9)
  - AMNESIA [None]
  - APHASIA [None]
  - CONFUSIONAL STATE [None]
  - DEPRESSED LEVEL OF CONSCIOUSNESS [None]
  - DRY EYE [None]
  - INSOMNIA [None]
  - MEDIAL TIBIAL STRESS SYNDROME [None]
  - RASH MACULAR [None]
  - TENDONITIS [None]
